FAERS Safety Report 16709180 (Version 1)
Quarter: 2019Q3

REPORT INFORMATION
  Report Type: Spontaneous
  Country: DE (occurrence: DE)
  Receive Date: 20190816
  Receipt Date: 20190816
  Transmission Date: 20191004
  Serious: Yes (Other)
  Sender: FDA-Public Use
  Company Number: PHHY2019DE187638

PATIENT
  Sex: Female
  Weight: 90 kg

DRUGS (3)
  1. L-THYROX [Suspect]
     Active Substance: LEVOTHYROXINE SODIUM
     Indication: PRODUCT USED FOR UNKNOWN INDICATION
     Dosage: UNK
     Route: 065
     Dates: start: 2014
  2. IBUPROFEN. [Suspect]
     Active Substance: IBUPROFEN
     Indication: PRODUCT USED FOR UNKNOWN INDICATION
     Dosage: UNK, PRN (1-2/MONTH)
     Route: 065
  3. VELAFEE [Suspect]
     Active Substance: DIENOGEST\ETHINYL ESTRADIOL
     Indication: PRODUCT USED FOR UNKNOWN INDICATION
     Dosage: UNK
     Route: 065
     Dates: start: 2012, end: 20190514

REACTIONS (5)
  - Dyspnoea [Unknown]
  - Hot flush [Unknown]
  - Pulmonary embolism [Unknown]
  - Intracardiac thrombus [Unknown]
  - Back pain [Unknown]

NARRATIVE: CASE EVENT DATE: 20190506
